FAERS Safety Report 19392495 (Version 1)
Quarter: 2021Q2

REPORT INFORMATION
  Report Type: Spontaneous
  Country: CN (occurrence: CN)
  Receive Date: 20210608
  Receipt Date: 20210608
  Transmission Date: 20210717
  Serious: Yes (Other)
  Sender: FDA-Public Use
  Company Number: CN-BAXTER-2021BAX014489

PATIENT
  Age: 43 Year
  Sex: Female
  Weight: 71.9 kg

DRUGS (6)
  1. 0.9% SODIUM CHLORIDE INJECTION [Suspect]
     Active Substance: SODIUM CHLORIDE
     Indication: MEDICATION DILUTION
     Dosage: 1ST CHEMOTHERAPY; EC REGIMEN: CYCLOPHOSPHAMIDE 0.99 G + 0.9% SODIUM CHLORIDE INJECTION 100 ML
     Route: 041
     Dates: start: 20210515, end: 20210515
  2. ENDOXAN [Suspect]
     Active Substance: CYCLOPHOSPHAMIDE
     Indication: BREAST CANCER FEMALE
     Dosage: 1ST CHEMOTHERAPY; EC REGIMEN: CYCLOPHOSPHAMIDE 0.99 G + 0.9% SODIUM CHLORIDE INJECTION 100 ML
     Route: 041
     Dates: start: 20210515, end: 20210515
  3. PHARMORUBICIN [Suspect]
     Active Substance: EPIRUBICIN
     Indication: BREAST CANCER FEMALE
     Dosage: 1ST CHEMOTHERAPY; EC REGIMEN: PHARMORUBICIN 165 MG + 0.9% SODIUM CHLORIDE 100 ML
     Route: 041
     Dates: start: 20210515, end: 20210515
  4. DEXAMETHASONE. [Concomitant]
     Active Substance: DEXAMETHASONE
     Indication: PROPHYLAXIS OF NAUSEA AND VOMITING
     Route: 042
     Dates: start: 20210515, end: 20210515
  5. TROPISETRON [Concomitant]
     Active Substance: TROPISETRON
     Indication: PROPHYLAXIS OF NAUSEA AND VOMITING
     Dosage: TROPISETRON INJECTION 5 MG + 0.9% SODIUM CHLORIDE INJECTION 5 ML
     Route: 065
     Dates: start: 20210515, end: 20210515
  6. 0.9% SODIUM CHLORIDE INJECTION [Suspect]
     Active Substance: SODIUM CHLORIDE
     Dosage: 1ST CHEMOTHERAPY; EC REGIMEN: PHARMORUBICIN 165 MG + 0.9% SODIUM CHLORIDE 100 ML
     Route: 041
     Dates: start: 20210515, end: 20210515

REACTIONS (2)
  - Nausea [Recovering/Resolving]
  - Vomiting [Recovering/Resolving]

NARRATIVE: CASE EVENT DATE: 20210515
